FAERS Safety Report 18676494 (Version 1)
Quarter: 2020Q4

REPORT INFORMATION
  Report Type: Spontaneous
  Country: US (occurrence: US)
  Receive Date: 20201229
  Receipt Date: 20201229
  Transmission Date: 20210114
  Serious: No
  Sender: FDA-Public Use
  Company Number: None

PATIENT
  Age: 100 Year
  Sex: Female
  Weight: 55.8 kg

DRUGS (19)
  1. VITAMIN D3 [Concomitant]
     Active Substance: CHOLECALCIFEROL
     Dates: start: 20201216, end: 20201224
  2. AZITHROMYCIN ANHYDROUS. [Concomitant]
     Active Substance: AZITHROMYCIN ANHYDROUS
     Dates: start: 20201215, end: 20201224
  3. HUMALOG KWIKPEN [Concomitant]
     Active Substance: INSULIN LISPRO
     Dates: start: 20200923, end: 20201225
  4. DUONEBS [Concomitant]
     Dates: start: 20201217, end: 20201224
  5. FAMOTIDINE. [Concomitant]
     Active Substance: FAMOTIDINE
     Dates: start: 20201215, end: 20201224
  6. LEVOTHYROXINE. [Concomitant]
     Active Substance: LEVOTHYROXINE
     Dates: start: 20181113, end: 20201225
  7. NORVASC [Concomitant]
     Active Substance: AMLODIPINE BESYLATE
     Dates: start: 20181222, end: 20201224
  8. THIAMINE. [Concomitant]
     Active Substance: THIAMINE
     Dates: start: 20201215, end: 20201224
  9. HYDROCODONE-ACETAMINOPHEN [Concomitant]
     Active Substance: ACETAMINOPHEN\HYDROCODONE
     Dates: start: 20201217, end: 20201224
  10. POTASSIUM CHLORIDE. [Concomitant]
     Active Substance: POTASSIUM CHLORIDE
     Dates: start: 20190717, end: 20201224
  11. SENNA PLUS [Concomitant]
     Active Substance: DOCUSATE SODIUM\SENNOSIDES\SENNOSIDES A AND B
     Dates: start: 20200528, end: 20201224
  12. BAMLANIVIMAB. [Suspect]
     Active Substance: BAMLANIVIMAB
     Indication: COVID-19
     Dosage: ?          OTHER FREQUENCY:ONCE;?
     Route: 041
     Dates: start: 20201222, end: 20201222
  13. CEFDINIR. [Concomitant]
     Active Substance: CEFDINIR
     Dates: start: 20201215, end: 20201224
  14. FUROSEMIDE. [Concomitant]
     Active Substance: FUROSEMIDE
     Dates: start: 20201222, end: 20201224
  15. MELATONIN [Concomitant]
     Active Substance: MELATONIN
     Dates: start: 20181113, end: 20201224
  16. CELECOXIB. [Concomitant]
     Active Substance: CELECOXIB
     Dates: start: 20190405, end: 20201224
  17. ZINC SULFATE. [Concomitant]
     Active Substance: ZINC SULFATE
     Dates: start: 20201215, end: 20201224
  18. JANUVIA [Concomitant]
     Active Substance: SITAGLIPTIN PHOSPHATE
     Dates: start: 20181113, end: 20201224
  19. LANTUS SOLOSTART [Concomitant]
     Dates: start: 20201030, end: 20201224

REACTIONS (1)
  - Death [None]

NARRATIVE: CASE EVENT DATE: 20201226
